FAERS Safety Report 5098055-7 (Version None)
Quarter: 2006Q3

REPORT INFORMATION
  Report Type: 
  Country: None (occurrence: None)
  Receive Date: 20060906
  Receipt Date: 20060727
  Transmission Date: 20061208
  Serious: Yes (Death, Life-Threatening, Hospitalization, Other)
  Sender: FDA-Public Use
  Company Number: IT-BRISTOL-MYERS SQUIBB COMPANY-13457841

PATIENT
  Age: 67 Year
  Sex: Male
  Weight: 74 kg

DRUGS (11)
  1. CISPLATIN [Suspect]
     Indication: MESOTHELIOMA
     Route: 042
     Dates: start: 20050812, end: 20050812
  2. PEMETREXED DISODIUM [Suspect]
     Indication: MESOTHELIOMA
     Route: 042
     Dates: start: 20050812, end: 20050812
  3. RADIATION THERAPY [Suspect]
     Indication: MESOTHELIOMA
     Dates: start: 20051221, end: 20051221
  4. FOLIC ACID [Concomitant]
     Indication: PROPHYLAXIS
     Dates: start: 20050620, end: 20050901
  5. VITAMIN B-12 [Concomitant]
     Indication: PROPHYLAXIS
     Dates: start: 20050622, end: 20050822
  6. DEXAMETHASONE TAB [Concomitant]
     Indication: PROPHYLAXIS
  7. VERAPAMIL [Concomitant]
     Indication: TACHYCARDIA PAROXYSMAL
     Dates: end: 20060123
  8. AMIODARONE HCL [Concomitant]
     Indication: ATRIAL FIBRILLATION
     Dates: start: 20050920, end: 20060123
  9. MEPRAL [Concomitant]
     Dates: start: 20050620, end: 20060123
  10. CODEINE PHOSPHATE AND ACETAMINOPHEN [Concomitant]
     Indication: PAIN
     Dates: start: 20051115, end: 20060123
  11. ISOPTIN [Concomitant]
     Indication: TACHYCARDIA PAROXYSMAL
     Dates: start: 20050615, end: 20060114

REACTIONS (5)
  - ACUTE RESPIRATORY DISTRESS SYNDROME [None]
  - CARDIAC FAILURE [None]
  - COR PULMONALE ACUTE [None]
  - PERICARDIAL EFFUSION [None]
  - RESPIRATORY FAILURE [None]
